FAERS Safety Report 7089113-6 (Version None)
Quarter: 2010Q4

REPORT INFORMATION
  Report Type: 
  Country: None (occurrence: None)
  Receive Date: 20101029
  Receipt Date: 20101025
  Transmission Date: 20110411
  Serious: Yes (Other)
  Sender: FDA-Public Use
  Company Number: 734836

PATIENT
  Age: 72 Year
  Sex: Female
  Weight: 71.1 kg

DRUGS (25)
  1. VANCOMYCIN HYDROCHLORIDE [Suspect]
     Indication: STAPHYLOCOCCAL INFECTION
     Dosage: 500 MG MILLIGRAM(S), 2 DAY, INTRAVENOUS; 250 MG MILLIGRAM(S) (2 DAY) INTRAVENOUS
     Route: 042
     Dates: start: 20100910, end: 20100922
  2. VANCOMYCIN HYDROCHLORIDE [Suspect]
     Indication: ULCER
     Dosage: 500 MG MILLIGRAM(S), 2 DAY, INTRAVENOUS; 250 MG MILLIGRAM(S) (2 DAY) INTRAVENOUS
     Route: 042
     Dates: start: 20100910, end: 20100922
  3. VANCOMYCIN HYDROCHLORIDE [Suspect]
     Indication: STAPHYLOCOCCAL INFECTION
     Dosage: 500 MG MILLIGRAM(S), 2 DAY, INTRAVENOUS; 250 MG MILLIGRAM(S) (2 DAY) INTRAVENOUS
     Route: 042
     Dates: start: 20100923, end: 20100925
  4. VANCOMYCIN HYDROCHLORIDE [Suspect]
     Indication: ULCER
     Dosage: 500 MG MILLIGRAM(S), 2 DAY, INTRAVENOUS; 250 MG MILLIGRAM(S) (2 DAY) INTRAVENOUS
     Route: 042
     Dates: start: 20100923, end: 20100925
  5. ASPIRIN [Concomitant]
  6. BISOPROLOL FUMARATE [Concomitant]
  7. (CALCICHEW D3) [Concomitant]
  8. CITALOPRAM HYDROBROMIDE [Concomitant]
  9. ENOXAPARIN SODIUM [Concomitant]
  10. (FENTANYL) [Concomitant]
  11. (FLUCLOXACILLIN) [Concomitant]
  12. FOLIC ACID [Concomitant]
  13. (GLICLAZIDE) [Concomitant]
  14. NITROGLYCERIN [Concomitant]
  15. ISOSORBIDE MONONITRATE [Concomitant]
  16. LEVOTHYROXINE SODIUM [Concomitant]
  17. METFORMIN HCL [Concomitant]
  18. (MOVICOL /01625101/) [Concomitant]
  19. OMEPRAZOLE [Concomitant]
  20. ORAMORPH SR [Concomitant]
  21. (PARACETAMOL) [Concomitant]
  22. RAMIPRIL [Concomitant]
  23. (SENNA /00142201/) [Concomitant]
  24. SIMVASTATIN [Concomitant]
  25. TRIMETHOPRIM [Concomitant]

REACTIONS (2)
  - PLEURAL EFFUSION [None]
  - THROMBOCYTOPENIA [None]
